FAERS Safety Report 9729998 (Version 1)
Quarter: 2013Q4

REPORT INFORMATION
  Report Type: Report from Study
  Country: US (occurrence: US)
  Receive Date: 20131204
  Receipt Date: 20131204
  Transmission Date: 20140711
  Serious: Yes (Death, Hospitalization, Other)
  Sender: FDA-Public Use
  Company Number: US-ALEXION PHARMACEUTICALS INC.-A200800474

PATIENT
  Sex: Female

DRUGS (2)
  1. SOLIRIS [Suspect]
     Indication: PAROXYSMAL NOCTURNAL HAEMOGLOBINURIA
     Dosage: UNK
     Route: 042
  2. PREDNISONE [Concomitant]
     Indication: HAEMOLYSIS
     Dosage: 20 MG, QD

REACTIONS (19)
  - Death [Fatal]
  - Anuria [Unknown]
  - Unresponsive to stimuli [Unknown]
  - Platelet count decreased [Unknown]
  - Lethargy [Unknown]
  - Mobility decreased [Unknown]
  - Sepsis [Unknown]
  - Haemoglobin decreased [Unknown]
  - Haemoglobinuria [Unknown]
  - Dyspnoea [Recovering/Resolving]
  - Dysphagia [Recovering/Resolving]
  - Limb discomfort [Unknown]
  - Liver injury [Unknown]
  - Erythema [Unknown]
  - Oedema peripheral [Unknown]
  - Fungal infection [Unknown]
  - Jaundice [Unknown]
  - Fatigue [Recovering/Resolving]
  - Haemolysis [Not Recovered/Not Resolved]
